FAERS Safety Report 9631495 (Version 1)
Quarter: 2013Q4

REPORT INFORMATION
  Report Type: Spontaneous
  Country: US (occurrence: None)
  Receive Date: 20131017
  Receipt Date: 20131017
  Transmission Date: 20140711
  Serious: No
  Sender: FDA-Public Use
  Company Number: None

PATIENT
  Age: 55 Year
  Sex: Female
  Weight: 88.45 kg

DRUGS (1)
  1. LEVAQUIN [Suspect]
     Indication: SINUSITIS
     Route: 048
     Dates: start: 20130924, end: 20131010

REACTIONS (7)
  - Arthralgia [None]
  - Tendon pain [None]
  - Oedema peripheral [None]
  - Headache [None]
  - Vision blurred [None]
  - Asthenia [None]
  - Agitation [None]
